FAERS Safety Report 18944799 (Version 1)
Quarter: 2021Q1

REPORT INFORMATION
  Report Type: Spontaneous
  Country: US (occurrence: US)
  Receive Date: 20210226
  Receipt Date: 20210226
  Transmission Date: 20210420
  Serious: Yes (Other)
  Sender: FDA-Public Use
  Company Number: US-CIPLA LTD.-2021US01322

PATIENT

DRUGS (2)
  1. GRISEOFULVIN. [Suspect]
     Active Substance: GRISEOFULVIN
     Indication: BODY TINEA
     Dosage: UNK, 3 MONTHS
     Route: 048
  2. TERBINAFINE. [Suspect]
     Active Substance: TERBINAFINE
     Indication: BODY TINEA
     Dosage: 250 MILLIGRAM, DAILY
     Route: 048

REACTIONS (2)
  - Drug resistance [Unknown]
  - Treatment failure [Unknown]
